FAERS Safety Report 14995217 (Version 3)
Quarter: 2019Q4

REPORT INFORMATION
  Report Type: Report from Study
  Country: CA (occurrence: CA)
  Receive Date: 20180611
  Receipt Date: 20191021
  Transmission Date: 20200122
  Serious: Yes (Other)
  Sender: FDA-Public Use
  Company Number: CA-PFIZER INC-2018070638

PATIENT
  Age: 60 Year
  Sex: Female

DRUGS (49)
  1. FLUCONAZOLE. [Suspect]
     Active Substance: FLUCONAZOLE
     Dosage: 50 MG, CYCLIC (3 TIMES PER WEEK)
     Route: 065
  2. VENTOLIN [Suspect]
     Active Substance: ALBUTEROL SULFATE
     Dosage: UNK
     Route: 065
  3. ATOCK [Suspect]
     Active Substance: FORMOTEROL FUMARATE
     Dosage: UNK UNK, 2X/DAY
     Route: 065
  4. CLARITHROMYCIN. [Suspect]
     Active Substance: CLARITHROMYCIN
     Dosage: 40 MILLIGRAM, BID
     Route: 065
  5. FLUTICASONE. [Suspect]
     Active Substance: FLUTICASONE
     Dosage: UNK, 2X/DAY
     Route: 065
  6. FORMOTEROL [Suspect]
     Active Substance: FORMOTEROL
     Dosage: UNK, 2X/DAY
     Route: 065
  7. FLONASE [Suspect]
     Active Substance: FLUTICASONE PROPIONATE
     Dosage: UNK UNK, 2X/DAY
     Route: 055
  8. RIVAROXABAN [Suspect]
     Active Substance: RIVAROXABAN
     Dosage: 10 MG, 1X/DAY
     Route: 065
  9. XARELTO [Suspect]
     Active Substance: RIVAROXABAN
     Dosage: 10 MG, 1X/DAY
     Route: 065
  10. PANTOPRAZOLE [Suspect]
     Active Substance: PANTOPRAZOLE
     Dosage: 40 MILLIGRAM, BID
     Route: 065
  11. UMECLIDINIUM BROMIDE [Suspect]
     Active Substance: UMECLIDINIUM BROMIDE
     Dosage: 1 MG, UNK
     Route: 045
  12. FORADIL [Suspect]
     Active Substance: FORMOTEROL FUMARATE
     Dosage: 2 DF, 1X/DAY
     Route: 065
  13. OXYNEO [Suspect]
     Active Substance: OXYCODONE
     Dosage: 15 MG, 3X/DAY
     Route: 065
  14. OXYNEO [Suspect]
     Active Substance: OXYCODONE
     Dosage: 3 DF, 1X/DAY
     Route: 065
  15. FLUTICASONE. [Suspect]
     Active Substance: FLUTICASONE
     Dosage: 2 DF, 1X/DAY
     Route: 055
  16. OXYCODONE [Suspect]
     Active Substance: OXYCODONE
     Dosage: 3 DF, 1X/DAY
     Route: 065
  17. MULTIVITAMINS [ASCORBIC ACID;ERGOCALCIFEROL;FOLIC ACID;NICOTINAMIDE;PA [Concomitant]
     Active Substance: VITAMINS
     Route: 065
  18. INFLUENZA VACCINE [Concomitant]
     Active Substance: INFLUENZA VIRUS VACCINE
     Route: 065
  19. UMECLIDINIUM BROMIDE [Suspect]
     Active Substance: UMECLIDINIUM BROMIDE
     Dosage: 1 DF, 1X/DAY
     Route: 055
  20. COLACE [Suspect]
     Active Substance: DOCUSATE SODIUM
     Dosage: 200 MG, DAILY (HS)
     Route: 065
  21. FORADIL [Suspect]
     Active Substance: FORMOTEROL FUMARATE
     Dosage: UNK UNK, 2X/DAY
     Route: 065
  22. CLARITHROMYCIN. [Suspect]
     Active Substance: CLARITHROMYCIN
     Dosage: 2 DF, 1X/DAY
     Route: 065
  23. AMOXICILLIN TRIHYDRATE;CLARITHROMYCIN;ESOMEPRAZOLE MAGNESIUM TRIHYDRAT [Suspect]
     Active Substance: AMOXICILLIN\CLARITHROMYCIN\ESOMEPRAZOLE
     Dosage: 40 MG, 2X/DAY
     Route: 065
  24. PULMICORT TURBUHALER [Concomitant]
     Active Substance: BUDESONIDE
     Indication: SEASONAL ALLERGY
  25. PNEUMOCOCCAL VACCINE POLYVALENT NOS [Concomitant]
     Active Substance: PNEUMOCOCCAL VACCINE POLYVALENT
     Dosage: UNK
     Route: 065
     Dates: start: 2015
  26. NYSTATIN. [Suspect]
     Active Substance: NYSTATIN
     Dosage: UNK UNK, 3X/DAY (SWISH AND SWALLOW)
     Route: 048
  27. NYSTATIN. [Suspect]
     Active Substance: NYSTATIN
     Dosage: 3 DF, 1X/DAY
     Route: 048
  28. AIROMIR /00139501/ [Suspect]
     Active Substance: ALBUTEROL
     Dosage: UNK UNK, AS NEEDED
  29. OXYCODONE HYDROCHLORIDE. [Suspect]
     Active Substance: OXYCODONE HYDROCHLORIDE
     Dosage: 15 MG, 3X/DAY (45 MG DAILY)
     Route: 065
  30. FLUTICASONE. [Suspect]
     Active Substance: FLUTICASONE
     Dosage: UNK
     Route: 065
  31. POLYMOX [Suspect]
     Active Substance: AMOXICILLIN
     Dosage: 2 DF, 1X/DAY
     Route: 065
  32. SALBUTAMOL [Suspect]
     Active Substance: ALBUTEROL
     Dosage: UNK
     Route: 065
  33. IPRATROPIUM/SALBUTAMOL [Suspect]
     Active Substance: ALBUTEROL\IPRATROPIUM BROMIDE
     Dosage: UNK
     Route: 065
  34. PULMICORT TURBUHALER [Concomitant]
     Active Substance: BUDESONIDE
     Indication: SEASONAL ALLERGY
     Dosage: UNK UNK, 2X/DAY
     Route: 045
     Dates: end: 2013
  35. METAMUCIL /00091301/ [Concomitant]
     Active Substance: PSYLLIUM HUSK
     Route: 065
  36. ESTRADIOL. [Suspect]
     Active Substance: ESTRADIOL
     Dosage: 3 DF, 1X/DAY (THREE PUMPS FOR EACH ARM EVRY DAY)
     Route: 065
  37. VENTOLIN [Suspect]
     Active Substance: ALBUTEROL SULFATE
     Dosage: UNK UNK, AS NEEDED
     Route: 065
  38. MONTELUKAST [Suspect]
     Active Substance: MONTELUKAST SODIUM
     Dosage: 10 MG, 1X/DAY
     Route: 065
  39. BREO ELLIPTA [Suspect]
     Active Substance: FLUTICASONE FUROATE\VILANTEROL TRIFENATATE
     Dosage: 1 DF, 1X/DAY (200 MCG)
     Route: 055
  40. FORMOTEROL [Suspect]
     Active Substance: FORMOTEROL
     Dosage: 2 DF, 1X/DAY
     Route: 065
  41. AMOXICILLIN. [Suspect]
     Active Substance: AMOXICILLIN
     Dosage: 40 MILLIGRAM, BID
     Route: 065
  42. NEXIUM 1-2-3 [Suspect]
     Active Substance: AMOXICILLIN\CLARITHROMYCIN\ESOMEPRAZOLE
     Dosage: 40 MG, 2X/DAY (80 MG DAILY)
  43. PREDNISONE. [Suspect]
     Active Substance: PREDNISONE
     Dosage: 15 MG, 1X/DAY
     Route: 065
  44. ACTONEL [Suspect]
     Active Substance: RISEDRONATE SODIUM
     Dosage: 35 MG, WEEKLY
     Route: 065
  45. PROCTODAN HC [Suspect]
     Active Substance: HYDROCORTISONE\PRAMOXINE\ZINC SULFATE
     Dosage: UNK, AS NEEDED
     Route: 065
  46. FLUTICASONE. [Suspect]
     Active Substance: FLUTICASONE
     Dosage: 2 DF, 1X/DAY
     Route: 045
  47. RISEDRONATE SODIUM. [Suspect]
     Active Substance: RISEDRONATE SODIUM
     Dosage: 35 MILLIGRAM, 1/WEEK
     Route: 065
  48. OMECLAMOX-PAK [Suspect]
     Active Substance: AMOXICILLIN\CLARITHROMYCIN\OMEPRAZOLE
     Dosage: 40 MILLIGRAM, BID
     Route: 065
  49. FORMOTEROL FUMARATE [Suspect]
     Active Substance: FORMOTEROL FUMARATE
     Dosage: 2 DOSAGE FORM, QD
     Route: 065

REACTIONS (36)
  - Iron deficiency anaemia [Unknown]
  - Weight increased [Unknown]
  - Hysterectomy [Unknown]
  - Female genital tract fistula [Unknown]
  - Obstructive airways disorder [Unknown]
  - Osteoarthritis [Unknown]
  - Sleep apnoea syndrome [Unknown]
  - Chest discomfort [Unknown]
  - Deep vein thrombosis [Unknown]
  - Respiratory symptom [Unknown]
  - Fungal infection [Unknown]
  - Tricuspid valve incompetence [Unknown]
  - Sinusitis fungal [Unknown]
  - Disease recurrence [Unknown]
  - Eczema [Unknown]
  - Asthma [Unknown]
  - Candida infection [Unknown]
  - Dyspnoea exertional [Unknown]
  - Gastrooesophageal reflux disease [Unknown]
  - Hiatus hernia [Unknown]
  - Sputum increased [Unknown]
  - Salpingo-oophorectomy unilateral [Unknown]
  - Embolism venous [Unknown]
  - Emphysema [Unknown]
  - Lower respiratory tract infection [Unknown]
  - Cough [Unknown]
  - Diastolic dysfunction [Unknown]
  - Dyspnoea [Unknown]
  - Oedema peripheral [Unknown]
  - Pulmonary embolism [Unknown]
  - Sinusitis [Unknown]
  - Diverticulum [Unknown]
  - Nasal polyps [Unknown]
  - Osteoporosis [Unknown]
  - Wheezing [Unknown]
  - Chronic sinusitis [Unknown]
